FAERS Safety Report 13175469 (Version 1)
Quarter: 2017Q1

REPORT INFORMATION
  Report Type: Spontaneous
  Country: US (occurrence: US)
  Receive Date: 20170131
  Receipt Date: 20170131
  Transmission Date: 20170428
  Serious: Yes (Other)
  Sender: FDA-Public Use
  Company Number: None

PATIENT
  Age: 45 Year
  Sex: Female
  Weight: 68.67 kg

DRUGS (5)
  1. KEYTRUDA [Suspect]
     Active Substance: PEMBROLIZUMAB
     Indication: INVASIVE DUCTAL BREAST CARCINOMA
     Dosage: EVERY 3 WEEKS;?
     Route: 041
     Dates: start: 20161031, end: 20170127
  2. KEYTRUDA [Suspect]
     Active Substance: PEMBROLIZUMAB
     Indication: METASTASES TO CENTRAL NERVOUS SYSTEM
     Dosage: EVERY 3 WEEKS;?
     Route: 041
     Dates: start: 20161031, end: 20170127
  3. IBUPROFEN. [Concomitant]
     Active Substance: IBUPROFEN
  4. OMEPRAZOLE. [Concomitant]
     Active Substance: OMEPRAZOLE
  5. CLOBETASON PROPIONATE [Concomitant]

REACTIONS (3)
  - Neutropenia [None]
  - Mucosal inflammation [None]
  - Febrile neutropenia [None]

NARRATIVE: CASE EVENT DATE: 20170102
